FAERS Safety Report 4850841-1 (Version None)
Quarter: 2005Q4

REPORT INFORMATION
  Report Type: 
  Country: None (occurrence: None)
  Receive Date: 20051208
  Receipt Date: 20051208
  Transmission Date: 20060501
  Serious: No
  Sender: FDA-Public Use
  Company Number: None

PATIENT

DRUGS (5)
  1. AVASTIN [Suspect]
     Indication: LUNG NEOPLASM MALIGNANT
     Dosage: 10 MG/KG Q 2 WEEKS 1ST DOSE 11/15/05
     Dates: start: 20051115
  2. ... [Concomitant]
  3. TAXOTERE [Concomitant]
  4. CARBOPLATIN [Concomitant]
  5. AUC 2 [Concomitant]

REACTIONS (1)
  - HAEMOPTYSIS [None]
